FAERS Safety Report 8788852 (Version 2)
Quarter: 2012Q4

REPORT INFORMATION
  Report Type: 
  Country: US (occurrence: US)
  Receive Date: 20120917
  Receipt Date: 20121113
  Transmission Date: 20130627
  Serious: No
  Sender: FDA-Public Use
  Company Number: US-PFIZER INC-2012225599

PATIENT
  Age: 54 Year
  Sex: Female

DRUGS (1)
  1. RAPAMUNE [Suspect]
     Indication: BONE DISORDER
     Dosage: 2 mg, 3x/day

REACTIONS (2)
  - Off label use [Unknown]
  - Toxicity to various agents [Unknown]
